FAERS Safety Report 20159836 (Version 3)
Quarter: 2022Q4

REPORT INFORMATION
  Report Type: Spontaneous
  Country: CA (occurrence: CA)
  Receive Date: 20211208
  Receipt Date: 20221125
  Transmission Date: 20230113
  Serious: Yes (Life-Threatening, Hospitalization, Other)
  Sender: FDA-Public Use
  Company Number: CA-TEVA-2021-CA-1984548

PATIENT
  Age: 10 Year
  Sex: Male

DRUGS (17)
  1. HYDROMORPHONE [Interacting]
     Active Substance: HYDROMORPHONE
     Indication: Femur fracture
     Route: 065
  2. HYDROMORPHONE [Interacting]
     Active Substance: HYDROMORPHONE
     Indication: Pain
     Route: 065
  3. HYDROMORPHONE [Interacting]
     Active Substance: HYDROMORPHONE
     Route: 065
  4. IBUPROFEN [Interacting]
     Active Substance: IBUPROFEN
     Indication: Femur fracture
     Dosage: 24 MILLIGRAM DAILY;
     Route: 065
  5. IBUPROFEN [Interacting]
     Active Substance: IBUPROFEN
     Indication: Pain
     Dosage: 2400 MILLIGRAM DAILY;
     Route: 065
  6. IBUPROFEN [Interacting]
     Active Substance: IBUPROFEN
     Dosage: 3600 MILLIGRAM DAILY;
     Route: 065
  7. IBUPROFEN [Interacting]
     Active Substance: IBUPROFEN
     Route: 048
  8. DESMOPRESSIN [Interacting]
     Active Substance: DESMOPRESSIN
     Indication: Diabetes insipidus
     Route: 045
  9. DESMOPRESSIN [Interacting]
     Active Substance: DESMOPRESSIN
     Route: 048
  10. DESMOPRESSIN [Interacting]
     Active Substance: DESMOPRESSIN
     Route: 065
  11. HYDROCORTISONE [Concomitant]
     Active Substance: HYDROCORTISONE
     Indication: Diabetes insipidus
     Dosage: 12 MILLIGRAM DAILY;
     Route: 048
  12. HYDROCORTISONE [Concomitant]
     Active Substance: HYDROCORTISONE
     Route: 048
  13. HYDROCORTISONE [Concomitant]
     Active Substance: HYDROCORTISONE
     Route: 065
  14. HYDROCORTISONE [Concomitant]
     Active Substance: HYDROCORTISONE
     Route: 048
  15. DDAVP [Concomitant]
     Active Substance: DESMOPRESSIN ACETATE
     Indication: Diabetes insipidus
     Dosage: 6.4 MILLIGRAM DAILY;
     Route: 048
  16. SOMATROPIN [Concomitant]
     Active Substance: SOMATROPIN
     Indication: Product used for unknown indication
     Route: 058
  17. SOMATROPIN [Concomitant]
     Active Substance: SOMATROPIN
     Indication: Product used for unknown indication
     Dosage: 1.3 MILLIGRAM DAILY;
     Route: 058

REACTIONS (14)
  - Blood sodium decreased [Recovered/Resolved]
  - Apnoea [Recovered/Resolved]
  - Bruxism [Recovered/Resolved]
  - Hypernatraemia [Recovered/Resolved]
  - Hypertonia [Recovered/Resolved]
  - Lethargy [Recovered/Resolved]
  - Seizure [Recovered/Resolved]
  - Unresponsive to stimuli [Recovered/Resolved]
  - Resuscitation [Recovered/Resolved]
  - Hyponatraemia [Recovered/Resolved]
  - Potentiating drug interaction [Recovered/Resolved]
  - Off label use [Recovered/Resolved]
  - Apnoeic attack [Recovered/Resolved]
  - Drug interaction [Recovered/Resolved]
